FAERS Safety Report 15616048 (Version 1)
Quarter: 2018Q4

REPORT INFORMATION
  Report Type: Other
  Country: ES (occurrence: ES)
  Receive Date: 20181114
  Receipt Date: 20181114
  Transmission Date: 20190205
  Serious: Yes (Other)
  Sender: FDA-Public Use
  Company Number: ES-APOTEX-2018AP024400

PATIENT
  Age: 62 Year
  Sex: Male

DRUGS (4)
  1. QUETIAPINE. [Interacting]
     Active Substance: QUETIAPINE
     Indication: DEPRESSION
     Dosage: 1200 MG, DAILY
     Route: 065
  2. FLUTICASONE W/SALMETEROL [Interacting]
     Active Substance: FLUTICASONE PROPIONATE\SALMETEROL XINAFOATE
     Indication: ASTHMA
     Dosage: 1 DF, DAILY; INTERVAL 1-0-1-0-2 INHALACIONES
     Route: 048
  3. QUETIAPINE. [Suspect]
     Active Substance: QUETIAPINE
     Indication: SCHIZOPHRENIA
     Route: 065
  4. HALOPERIDOL. [Interacting]
     Active Substance: HALOPERIDOL
     Indication: PSYCHOTIC DISORDER
     Dosage: 5 MG, TID (15 MILLIGRAM DAILY)
     Route: 065

REACTIONS (5)
  - Hypothyroidism [Unknown]
  - Prescribed overdose [Unknown]
  - Drug interaction [Unknown]
  - Type 2 diabetes mellitus [Unknown]
  - Pruritus [Unknown]
